FAERS Safety Report 16843723 (Version 1)
Quarter: 2019Q4

REPORT INFORMATION
  Report Type: Spontaneous
  Country: US (occurrence: US)
  Receive Date: 20190923
  Receipt Date: 20190923
  Transmission Date: 20200122
  Serious: Yes (Other)
  Sender: FDA-Public Use
  Company Number: None

PATIENT
  Age: 58 Year
  Sex: Female
  Weight: 112.5 kg

DRUGS (6)
  1. ATENOLOL 50MG [Concomitant]
     Active Substance: ATENOLOL
  2. FLONASE [Concomitant]
     Active Substance: FLUTICASONE PROPIONATE
  3. OXYBUTININ 5MG [Concomitant]
  4. IBUPROFEN OR NAPROXEN [Concomitant]
  5. CIPROFLOXACIN HCL500MG TAB [Suspect]
     Active Substance: CIPROFLOXACIN HYDROCHLORIDE
     Indication: URINARY TRACT INFECTION
     Dosage: ?          QUANTITY:1 TABLET(S);?
     Route: 048
     Dates: start: 20190530, end: 20190601
  6. IMODIUM [Concomitant]
     Active Substance: LOPERAMIDE HYDROCHLORIDE

REACTIONS (9)
  - Back pain [None]
  - Neck pain [None]
  - Anxiety [None]
  - Arthralgia [None]
  - Musculoskeletal pain [None]
  - Musculoskeletal stiffness [None]
  - Tendonitis [None]
  - Myalgia [None]
  - Insomnia [None]

NARRATIVE: CASE EVENT DATE: 20190601
